FAERS Safety Report 7351989-2 (Version None)
Quarter: 2011Q1

REPORT INFORMATION
  Report Type: 
  Country: None (occurrence: None)
  Receive Date: 20110315
  Receipt Date: 20110312
  Transmission Date: 20110831
  Serious: Yes (Other)
  Sender: FDA-Public Use
  Company Number: US-PFIZER INC-2011054767

PATIENT
  Sex: Male
  Weight: 77 kg

DRUGS (6)
  1. HYZAAR [Concomitant]
     Dosage: UNK
  2. CHANTIX [Suspect]
     Dosage: 1 MG, 2X/DAY
     Route: 048
     Dates: end: 20110311
  3. NIFEDIPINE [Concomitant]
     Indication: HYPERTENSION
     Dosage: UNK
  4. METOPROLOL [Concomitant]
     Indication: THYROID DISORDER
     Dosage: UNK
  5. CHANTIX [Suspect]
     Indication: SMOKING CESSATION THERAPY
     Dosage: 0.5 MG, 1X/DAY
     Route: 048
     Dates: start: 20100101
  6. METHIMAZOLE [Concomitant]
     Indication: THYROID DISORDER
     Dosage: UNK

REACTIONS (2)
  - DEPRESSION [None]
  - SUICIDE ATTEMPT [None]
